FAERS Safety Report 5713062-6 (Version None)
Quarter: 2008Q2

REPORT INFORMATION
  Report Type: 
  Country: None (occurrence: None)
  Receive Date: 20080418
  Receipt Date: 20080402
  Transmission Date: 20081010
  Serious: Yes (Other)
  Sender: FDA-Public Use
  Company Number: 2008S1005580

PATIENT
  Age: 86 Year
  Sex: Female

DRUGS (11)
  1. BISOPROLOL FUMARATE [Suspect]
     Indication: HYPERTENSION
     Dosage: 10 MG; DAILY; 5 MG; DAILY
     Dates: start: 20061201, end: 20071201
  2. BISOPROLOL FUMARATE [Suspect]
     Indication: HYPERTENSION
     Dosage: 10 MG; DAILY; 5 MG; DAILY
     Dates: start: 20070701, end: 20071201
  3. ADCAL /00056901/ (CON.) [Concomitant]
  4. ASPIRIN /00002701/ (CON.) [Concomitant]
  5. DIOVAN /01319601/ (CON.) [Concomitant]
  6. FYBOGEL (CON.) [Concomitant]
  7. GTN (CON.) [Concomitant]
  8. ISOTARD XL (CON.) [Concomitant]
  9. LATANOPROST (CON.) [Concomitant]
  10. METHYLDOPA (CON.) [Concomitant]
  11. SENNA /00142208/ (CON.) [Concomitant]

REACTIONS (4)
  - FALL [None]
  - HALLUCINATION [None]
  - HEAD INJURY [None]
  - LOSS OF CONSCIOUSNESS [None]
